FAERS Safety Report 11785852 (Version 2)
Quarter: 2015Q4

REPORT INFORMATION
  Report Type: Spontaneous
  Country: US (occurrence: US)
  Receive Date: 20151130
  Receipt Date: 20151214
  Transmission Date: 20160305
  Serious: Yes (Other)
  Sender: FDA-Public Use
  Company Number: ALCN2015US007372

PATIENT
  Sex: Female
  Weight: 54.42 kg

DRUGS (2)
  1. TIMOLOL. [Concomitant]
     Active Substance: TIMOLOL
     Indication: INTRAOCULAR PRESSURE INCREASED
     Dosage: UNK UNK, BID
     Route: 047
  2. LATANOPROST. [Suspect]
     Active Substance: LATANOPROST
     Indication: INTRAOCULAR PRESSURE INCREASED
     Dosage: UNK, QD
     Route: 047

REACTIONS (7)
  - Muscle tightness [Unknown]
  - Malaise [Unknown]
  - Blood pressure increased [Unknown]
  - Dyspnoea [Unknown]
  - Nasal congestion [Unknown]
  - Heart rate increased [Unknown]
  - Reaction to preservatives [Unknown]
